FAERS Safety Report 13726827 (Version 2)
Quarter: 2017Q3

REPORT INFORMATION
  Report Type: Spontaneous
  Country: US (occurrence: US)
  Receive Date: 20170707
  Receipt Date: 20170809
  Transmission Date: 20171127
  Serious: Yes (Other)
  Sender: FDA-Public Use
  Company Number: US-AUROBINDO-AUR-APU-2017-36307

PATIENT
  Age: 64 Year
  Sex: Male
  Weight: 77.11 kg

DRUGS (11)
  1. MARIJUANA [Concomitant]
     Active Substance: CANNABIS SATIVA SUBSP. INDICA TOP
     Indication: INSOMNIA
     Dosage: UNK
     Route: 065
     Dates: start: 2005
  2. MAGNESIUM [Concomitant]
     Active Substance: MAGNESIUM
     Indication: MUSCLE SPASMS
     Dosage: 250 MG, ONCE A DAY, IN THE MORNING
     Route: 065
  3. MULTIVITAMIN                       /00097801/ [Concomitant]
     Active Substance: VITAMINS
     Indication: MUSCLE SPASMS
     Dosage: 630 MG, ONCE IN THE MORNING
     Dates: start: 2016
  4. POTASSIUM [Concomitant]
     Active Substance: POTASSIUM
     Indication: PRODUCT USED FOR UNKNOWN INDICATION
     Dosage: 99 MG, ONCE A DAY IN THE MORNING CAPLET
     Route: 065
  5. GABAPENTIN CAPSULES 100 MG [Suspect]
     Active Substance: GABAPENTIN
     Indication: PAIN
     Dosage: TAKE ONE CAPSULE BY MOUTH FOR 3-5 DAYS, THEN INCREASE BY 1CAPSULE A DAY EVERY 3-5 DAYS
     Route: 048
     Dates: start: 20170215, end: 20170502
  6. NEXIUM [Concomitant]
     Active Substance: ESOMEPRAZOLE MAGNESIUM
     Indication: DYSPEPSIA
     Dosage: 20 MG, DAILY
     Route: 065
  7. DOCUSATE SODIUM. [Concomitant]
     Active Substance: DOCUSATE SODIUM
     Indication: FREQUENT BOWEL MOVEMENTS
     Dosage: 100 MG, ONCE A DAY, AT NIGHT
  8. MORPHINE [Concomitant]
     Active Substance: MORPHINE
     Indication: PAIN
     Dosage: 30 MG, 3 TIMES A DAY
     Route: 065
     Dates: start: 2005
  9. CITRACAL                           /00751520/ [Concomitant]
     Active Substance: CALCIUM CITRATE
     Indication: MUSCLE SPASMS
     Route: 065
  10. MARIJUANA [Concomitant]
     Active Substance: CANNABIS SATIVA SUBSP. INDICA TOP
     Indication: PAIN
  11. IRON [Concomitant]
     Active Substance: IRON
     Indication: ANAEMIA
     Dosage: 65 MG, ONCE EVERY MORNING
     Route: 065

REACTIONS (7)
  - Insomnia [Recovered/Resolved]
  - Headache [Recovered/Resolved]
  - Personality change [Recovering/Resolving]
  - Feeling abnormal [Recovering/Resolving]
  - Thinking abnormal [Recovered/Resolved]
  - Crime [Recovered/Resolved]
  - Drug ineffective [Unknown]

NARRATIVE: CASE EVENT DATE: 201702
